FAERS Safety Report 5166511-9 (Version None)
Quarter: 2006Q4

REPORT INFORMATION
  Report Type: 
  Country: None (occurrence: None)
  Receive Date: 20061207
  Receipt Date: 20020204
  Transmission Date: 20070319
  Serious: Yes (Hospitalization, Congenital Anomaly)
  Sender: FDA-Public Use
  Company Number: US-BRISTOL-MYERS SQUIBB COMPANY-11707023

PATIENT
  Age: 24 Hour
  Sex: Female
  Weight: 3 kg

DRUGS (5)
  1. ZERIT [Suspect]
     Indication: HIV INFECTION
     Route: 064
  2. VIDEX [Suspect]
     Indication: HIV INFECTION
     Route: 064
  3. VIRACEPT [Suspect]
     Indication: HIV INFECTION
     Route: 064
  4. RETROVIR [Suspect]
     Indication: HIV INFECTION
     Dosage: THE MOTHER RECEIVED AN INFUSION AT WEEK 14 AND WEEK 39 OF GESTATION, RESPECTIVELY.
  5. ZERIT [Suspect]
     Route: 048

REACTIONS (10)
  - ARTHROPATHY [None]
  - BLOOD LACTATE DEHYDROGENASE INCREASED [None]
  - BLOOD LACTIC ACID INCREASED [None]
  - BLOOD PYRUVIC ACID INCREASED [None]
  - CHONDROMATOSIS [None]
  - CONGENITAL CYSTIC KIDNEY DISEASE [None]
  - HYPERTRIGLYCERIDAEMIA [None]
  - MACROCYTOSIS [None]
  - NEUTROPENIA [None]
  - RENAL DYSPLASIA [None]
